FAERS Safety Report 9193137 (Version 2)
Quarter: 2013Q2

REPORT INFORMATION
  Report Type: Spontaneous
  Country: US (occurrence: US)
  Receive Date: 20130327
  Receipt Date: 20130506
  Transmission Date: 20140414
  Serious: Yes (Hospitalization)
  Sender: FDA-Public Use
  Company Number: US-ASTRAZENECA-2013SE18172

PATIENT
  Age: 67 Year
  Sex: Male
  Weight: 67.1 kg

DRUGS (4)
  1. SYMBICORT [Suspect]
     Indication: ASTHMA
     Dosage: 80/4.5 MICROGRAMS, TWO PUFFS TWICE DAILY.
     Route: 055
  2. ALBUTEROL [Concomitant]
     Indication: ASTHMA
     Dosage: AS PER NEEDED.
     Route: 055
  3. NASONEX [Concomitant]
     Indication: SEASONAL ALLERGY
     Dosage: AS PER NEEDED.
     Route: 045
     Dates: start: 2012
  4. FLONASE [Concomitant]
     Indication: SEASONAL ALLERGY
     Dosage: 2 SPRAYS DAILY
     Route: 045

REACTIONS (2)
  - Lymphoma [Recovered/Resolved]
  - Incorrect storage of drug [Unknown]
